FAERS Safety Report 14180482 (Version 1)
Quarter: 2017Q4

REPORT INFORMATION
  Report Type: Spontaneous
  Country: IT (occurrence: IT)
  Receive Date: 20171111
  Receipt Date: 20171111
  Transmission Date: 20180321
  Serious: Yes (Other)
  Sender: FDA-Public Use
  Company Number: IT-TEVA-822859ACC

PATIENT
  Age: 95 Year
  Sex: Female

DRUGS (1)
  1. OLANZAPINA TEVA - TEVA B.V. [Suspect]
     Active Substance: OLANZAPINE
     Indication: BEHAVIOUR DISORDER DUE TO A GENERAL MEDICAL CONDITION
     Dosage: 7.5 MILLIGRAM DAILY;
     Route: 048
     Dates: start: 20170408, end: 20171001

REACTIONS (2)
  - Drug ineffective [Unknown]
  - Off label use [Unknown]

NARRATIVE: CASE EVENT DATE: 20171001
